FAERS Safety Report 8499885-1 (Version None)
Quarter: 2012Q3

REPORT INFORMATION
  Report Type: 
  Country: None (occurrence: None)
  Receive Date: 20120710
  Receipt Date: 20120705
  Transmission Date: 20120928
  Serious: Yes (Life-Threatening)
  Sender: FDA-Public Use
  Company Number: FR-ASTRAZENECA-2012SE45964

PATIENT
  Age: 12480 Day
  Sex: Female

DRUGS (5)
  1. KETAMINE HCL [Suspect]
     Route: 065
     Dates: start: 20111201, end: 20111201
  2. XYLOCAINE [Suspect]
     Route: 065
     Dates: start: 20111201, end: 20111201
  3. DIPRIVAN [Suspect]
     Route: 042
     Dates: start: 20111201, end: 20111201
  4. CELOCURINE [Suspect]
     Indication: ANAESTHESIA
     Dosage: ONCE/SINGLE ADMINISTRATION
     Route: 042
     Dates: start: 20111201, end: 20111201
  5. SUFENTANIL CITRATE [Suspect]
     Indication: ANAESTHESIA
     Route: 065
     Dates: start: 20111201, end: 20111201

REACTIONS (3)
  - BRONCHOSPASM [None]
  - HYPOTENSION [None]
  - TACHYCARDIA [None]
